FAERS Safety Report 11942115 (Version 1)
Quarter: 2016Q1

REPORT INFORMATION
  Report Type: Report from Study
  Country: IL (occurrence: IL)
  Receive Date: 20160124
  Receipt Date: 20160124
  Transmission Date: 20160526
  Serious: Yes (Hospitalization)
  Sender: FDA-Public Use
  Company Number: IL-ROCHE-1633253

PATIENT
  Age: 78 Year
  Sex: Female
  Weight: 60.4 kg

DRUGS (14)
  1. ASPIRIN. [Concomitant]
     Active Substance: ASPIRIN
     Indication: MYOCARDIAL ISCHAEMIA
     Route: 065
     Dates: end: 20150910
  2. PACKED RED BLOOD CELLS [Concomitant]
     Active Substance: HUMAN RED BLOOD CELL
     Indication: ANAEMIA
     Route: 065
     Dates: start: 20150830, end: 20150830
  3. CEFORAL (ISRAEL) [Concomitant]
     Route: 065
     Dates: start: 20151021, end: 20151024
  4. CHLORAMBUCIL [Suspect]
     Active Substance: CHLORAMBUCIL
     Indication: CHRONIC LYMPHOCYTIC LEUKAEMIA
     Dosage: LAST DOSE PRIOR TO THE FEBRILE NEUTROPENIA WAS ADMINISTERED ON 06/SEP/2015
     Route: 065
     Dates: start: 20150906
  5. MIRTAZAPINE. [Concomitant]
     Active Substance: MIRTAZAPINE
     Indication: ANXIETY
     Route: 065
  6. NEUPOGEN [Concomitant]
     Active Substance: FILGRASTIM
     Indication: NEUTROPENIA
     Route: 065
     Dates: start: 20150916, end: 20150916
  7. ALLORIL [Concomitant]
     Indication: TUMOUR LYSIS SYNDROME
     Route: 065
     Dates: start: 20150905, end: 20150906
  8. OBINUTUZUMAB [Suspect]
     Active Substance: OBINUTUZUMAB
     Indication: CHRONIC LYMPHOCYTIC LEUKAEMIA
     Dosage: FREQUENCY: C1D1, D2, D8, D15, THEN EVERY 28 DAYS FOR 5 MONTHS?LAST DOSE PRIOR TO THE FEBRILE NEUTROP
     Route: 065
     Dates: start: 20150906
  9. ASPIRIN. [Concomitant]
     Active Substance: ASPIRIN
     Route: 065
     Dates: start: 20150913
  10. LEVOTIROXIN [Concomitant]
     Indication: HYPOTHYROIDISM
     Route: 065
  11. CEFORAL (ISRAEL) [Concomitant]
     Indication: ACNE
     Route: 065
     Dates: start: 20151015, end: 20151020
  12. LIPITOR [Concomitant]
     Active Substance: ATORVASTATIN CALCIUM
     Indication: HYPERLIPIDAEMIA
     Route: 065
  13. ALLORIL [Concomitant]
     Route: 065
     Dates: start: 20150907, end: 20150910
  14. ACYCLOVIR. [Concomitant]
     Active Substance: ACYCLOVIR
     Indication: HERPES ZOSTER
     Route: 065
     Dates: start: 20151122

REACTIONS (1)
  - Febrile neutropenia [Recovered/Resolved]

NARRATIVE: CASE EVENT DATE: 20150910
